FAERS Safety Report 9529418 (Version 2)
Quarter: 2013Q4

REPORT INFORMATION
  Report Type: Spontaneous
  Country: EC (occurrence: EC)
  Receive Date: 20130917
  Receipt Date: 20131024
  Transmission Date: 20140711
  Serious: Yes (Other)
  Sender: FDA-Public Use
  Company Number: EC-PFIZER INC-2013266737

PATIENT
  Age: 67 Year
  Sex: Male

DRUGS (1)
  1. NORVASC [Suspect]
     Indication: HYPERTENSION
     Dosage: 5 MG, 1X/DAY
     Route: 048
     Dates: start: 2009, end: 201308

REACTIONS (1)
  - Haemorrhage intracranial [Recovered/Resolved]
